FAERS Safety Report 14155619 (Version 1)
Quarter: 2017Q4

REPORT INFORMATION
  Report Type: Spontaneous
  Country: US (occurrence: US)
  Receive Date: 20171103
  Receipt Date: 20171103
  Transmission Date: 20180321
  Serious: Yes (Other)
  Sender: FDA-Public Use
  Company Number: US-ROCHE-2017629

PATIENT
  Sex: Male

DRUGS (21)
  1. FLUDROCORTISONE [Concomitant]
     Active Substance: FLUDROCORTISONE
     Dosage: 1 PO Q AM
     Route: 048
  2. VITAMIN B12 [Concomitant]
     Active Substance: CYANOCOBALAMIN
     Dosage: 2 PO QD
     Route: 048
  3. FLEET (BISACODYL) [Concomitant]
     Active Substance: BISACODYL
     Dosage: 10MG/30 ML ENEMA 1 SUPP PM
     Route: 065
  4. LACTOBACILLUS ACIDOPHILUS [Concomitant]
     Active Substance: LACTOBACILLUS ACIDOPHILUS
     Dosage: 1 PO BID
     Route: 048
  5. CATHFLO ACTIVASE [Suspect]
     Active Substance: ALTEPLASE
     Indication: CEREBROVASCULAR ACCIDENT
     Route: 065
  6. JEVITY (UNITED STATES) [Concomitant]
     Dosage: 1.5 CAL 0.06 G- 1.5K/CAL/ ML ORAL LIQUID 1 CAN Q H
     Route: 048
  7. NITROGLYCERIN. [Concomitant]
     Active Substance: NITROGLYCERIN
     Dosage: SPRAY, NON- AEROSOL TAKE AS DIRECTED.
     Route: 065
  8. VITAMIN E [Concomitant]
     Active Substance: .ALPHA.-TOCOPHEROL
     Dosage: 400 UNIT CAP 1 PO QD
     Route: 048
  9. CITALOPRAM [Concomitant]
     Active Substance: CITALOPRAM HYDROBROMIDE
     Dosage: 2 PO QD
     Route: 048
  10. ALBUTEROL SULFATE. [Concomitant]
     Active Substance: ALBUTEROL SULFATE
     Dosage: 1 PUFF Q HR PM
     Route: 065
  11. BISACODYL. [Concomitant]
     Active Substance: BISACODYL
     Dosage: 2 PO QD
     Route: 048
  12. LORAZEPAM. [Concomitant]
     Active Substance: LORAZEPAM
     Dosage: 1 PO QD PRN
     Route: 048
  13. OMEGA 3 [Concomitant]
     Active Substance: OMEGA-3 FATTY ACIDS
     Dosage: OIL 500MG-115MG-30-MG-64MG CAPSULE 1 PO QD
     Route: 065
  14. OMEGA FATTY ACIDS [Concomitant]
     Active Substance: FISH OIL\OMEGA-3 FATTY ACIDS
     Dosage: 400MG-400-MG-200MG CAP 1 PO QD
     Route: 048
  15. FLOMAX [Concomitant]
     Active Substance: TAMSULOSIN HYDROCHLORIDE
     Dosage: 1 PO QD
     Route: 048
  16. METOPROLOL TARTRATE. [Concomitant]
     Active Substance: METOPROLOL TARTRATE
     Dosage: 1 PO BID
     Route: 048
  17. NORTHERA [Suspect]
     Active Substance: DROXIDOPA
     Indication: ORTHOSTATIC HYPOTENSION
     Route: 065
  18. SEROQUEL [Concomitant]
     Active Substance: QUETIAPINE FUMARATE
     Dosage: 1PO QHS
     Route: 048
  19. ATORVASTIN [Concomitant]
     Active Substance: ATORVASTATIN
     Dosage: 1 PO QD
     Route: 048
  20. ELIQUIS [Concomitant]
     Active Substance: APIXABAN
     Indication: PULMONARY EMBOLISM
     Dosage: 1 PO BID
     Route: 048
  21. LIDOCAINE. [Concomitant]
     Active Substance: LIDOCAINE
     Dosage: TOPICAL PATCH APPLY PATCH TO RIGHT SHOULDER
     Route: 061

REACTIONS (5)
  - Hemiplegia [Unknown]
  - Hypotension [Unknown]
  - Cerebrovascular accident [Unknown]
  - Hemiparesis [Unknown]
  - Dizziness [Unknown]
